FAERS Safety Report 17477654 (Version 4)
Quarter: 2020Q3

REPORT INFORMATION
  Report Type: Spontaneous
  Country: FR (occurrence: FR)
  Receive Date: 20200228
  Receipt Date: 20200907
  Transmission Date: 20201102
  Serious: Yes (Other)
  Sender: FDA-Public Use
  Company Number: FR-US-PROVELL PHARMACEUTICALS LLC-E2B_90075161

PATIENT
  Age: 96 Year
  Sex: Female

DRUGS (4)
  1. EUTHYROX [Suspect]
     Active Substance: LEVOTHYROXINE SODIUM
     Indication: THYROID DISORDER
     Dates: end: 2020
  2. LEVOTHYROX [Suspect]
     Active Substance: LEVOTHYROXINE
     Indication: THYROID DISORDER
  3. LEVOTHYROX [Suspect]
     Active Substance: LEVOTHYROXINE
     Dates: start: 2020, end: 2020
  4. LEVOTHYROX [Suspect]
     Active Substance: LEVOTHYROXINE
     Dosage: REINTRODUCED

REACTIONS (24)
  - Drug intolerance [Unknown]
  - Fatigue [Unknown]
  - Dysphagia [Unknown]
  - Balance disorder [Unknown]
  - Drug hypersensitivity [Unknown]
  - Gait disturbance [Unknown]
  - Pain in extremity [Unknown]
  - Wrist fracture [Unknown]
  - Parathyroid disorder [Unknown]
  - Pain [Not Recovered/Not Resolved]
  - Oedema peripheral [Unknown]
  - Blood thyroid stimulating hormone abnormal [Unknown]
  - Oropharyngeal discomfort [Unknown]
  - Wound [Unknown]
  - Swelling [Unknown]
  - Treatment noncompliance [Unknown]
  - Polyneuropathy [Unknown]
  - Neck pain [Unknown]
  - Muscular weakness [Unknown]
  - Feeling abnormal [Unknown]
  - Weight decreased [Recovering/Resolving]
  - Fall [Unknown]
  - Decreased appetite [Recovered/Resolved]
  - Blood thyroid stimulating hormone increased [Unknown]

NARRATIVE: CASE EVENT DATE: 2020
